FAERS Safety Report 17867216 (Version 1)
Quarter: 2020Q2

REPORT INFORMATION
  Report Type: Report from Study
  Country: IT (occurrence: IT)
  Receive Date: 20200605
  Receipt Date: 20200605
  Transmission Date: 20200714
  Serious: Yes (Other)
  Sender: FDA-Public Use
  Company Number: IT-PFIZER INC-2020220937

PATIENT
  Age: 16 Year
  Sex: Male

DRUGS (5)
  1. TALOFEN [Suspect]
     Active Substance: PROMAZINE HYDROCHLORIDE
     Dosage: 30 DROP
     Dates: start: 20191121, end: 20191121
  2. XANAX [Suspect]
     Active Substance: ALPRAZOLAM
     Dosage: 90 DROP
     Route: 048
     Dates: start: 20191121, end: 20191121
  3. RIVOTRIL [Suspect]
     Active Substance: CLONAZEPAM
     Dosage: 20 DROP
     Route: 048
     Dates: start: 20191121, end: 20191121
  4. VALIUM [Concomitant]
     Active Substance: DIAZEPAM
     Dosage: 35 DROP
  5. RISPERDAL [Concomitant]
     Active Substance: RISPERIDONE
     Dosage: 2 DF

REACTIONS (5)
  - Asthenia [Recovering/Resolving]
  - Drug abuse [Recovering/Resolving]
  - Product use issue [Unknown]
  - Somnolence [Recovering/Resolving]
  - Off label use [Unknown]

NARRATIVE: CASE EVENT DATE: 20191121
